FAERS Safety Report 15763695 (Version 2)
Quarter: 2019Q2

REPORT INFORMATION
  Report Type: Report from Study
  Country: US (occurrence: US)
  Receive Date: 20181227
  Receipt Date: 20190416
  Transmission Date: 20190711
  Serious: Yes (Other)
  Sender: FDA-Public Use
  Company Number: US-ROCHE-2018032

PATIENT
  Sex: Female

DRUGS (3)
  1. CELLCEPT [Suspect]
     Active Substance: MYCOPHENOLATE MOFETIL\MYCOPHENOLATE MOFETIL HYDROCHLORIDE
     Indication: LICHEN PLANUS
     Dosage: TAKE 4 TABLETS BY MOUTH TWICE DAILY
     Route: 048
  2. CELLCEPT [Suspect]
     Active Substance: MYCOPHENOLATE MOFETIL\MYCOPHENOLATE MOFETIL HYDROCHLORIDE
     Indication: LICHEN PLANUS
  3. CELLCEPT [Suspect]
     Active Substance: MYCOPHENOLATE MOFETIL\MYCOPHENOLATE MOFETIL HYDROCHLORIDE
     Indication: ORAL LICHEN PLANUS
     Dosage: TAKES 2 G EVERY AM AND 1.5G EVERY PM^
     Route: 048

REACTIONS (5)
  - Glaucoma [Unknown]
  - Oral lichen planus [Unknown]
  - Intentional product use issue [Unknown]
  - Macular degeneration [Unknown]
  - Off label use [Unknown]
